FAERS Safety Report 8932498 (Version 1)
Quarter: 2012Q4

REPORT INFORMATION
  Report Type: Spontaneous
  Country: US (occurrence: None)
  Receive Date: 20121126
  Receipt Date: 20121126
  Transmission Date: 20130627
  Serious: Yes (Hospitalization)
  Sender: FDA-Public Use
  Company Number: None

PATIENT
  Age: 55 Year
  Sex: Male
  Weight: 108.86 kg

DRUGS (1)
  1. XIAFLEX [Suspect]
     Indication: COMPLEX REGIONAL PAIN SYNDROME
     Dosage: 2.5ml-xiafix inject/2.3 movements ; hand
5cc lidocane +3cc
     Dates: start: 20120416

REACTIONS (5)
  - Oedema peripheral [None]
  - Pain in extremity [None]
  - Arthralgia [None]
  - Joint range of motion decreased [None]
  - Muscular weakness [None]
